FAERS Safety Report 11836894 (Version 1)
Quarter: 2015Q4

REPORT INFORMATION
  Report Type: Spontaneous
  Country: US (occurrence: US)
  Receive Date: 20151215
  Receipt Date: 20151215
  Transmission Date: 20160305
  Serious: Yes (Death)
  Sender: FDA-Public Use
  Company Number: US-INSYS THERAPEUTICS, INC-INS201512-000532

PATIENT
  Age: 46 Year
  Sex: Male

DRUGS (4)
  1. ACETYL FENTANYL [Suspect]
     Active Substance: ACETYLFENTANYL
  2. COCAINE [Suspect]
     Active Substance: COCAINE
  3. FENTANYL. [Suspect]
     Active Substance: FENTANYL
  4. HEROIN [Suspect]
     Active Substance: DIACETYLMORPHINE

REACTIONS (2)
  - Accidental death [None]
  - Toxicity to various agents [Fatal]
